FAERS Safety Report 6294352-8 (Version None)
Quarter: 2009Q3

REPORT INFORMATION
  Report Type: 
  Country: None (occurrence: None)
  Receive Date: 20090803
  Receipt Date: 20090722
  Transmission Date: 20100115
  Serious: Yes (Hospitalization, Other)
  Sender: FDA-Public Use
  Company Number: US-PFIZER INC-2009227479

PATIENT
  Weight: 95.692 kg

DRUGS (1)
  1. LYRICA [Suspect]
     Indication: NEURALGIA
     Dosage: 150 MG, 2X/DAY
     Route: 048
     Dates: start: 20080501

REACTIONS (4)
  - FALL [None]
  - GRAND MAL CONVULSION [None]
  - MUSCLE TWITCHING [None]
  - MUSCULAR WEAKNESS [None]
